FAERS Safety Report 4596182-1 (Version None)
Quarter: 2005Q1

REPORT INFORMATION
  Report Type: 
  Country: None (occurrence: None)
  Receive Date: 20050225
  Receipt Date: 20050217
  Transmission Date: 20050727
  Serious: Yes (Hospitalization, Other)
  Sender: FDA-Public Use
  Company Number: 2005-01-0467

PATIENT
  Age: 51 Year
  Sex: Male
  Weight: 65 kg

DRUGS (8)
  1. REBETOL [Suspect]
     Indication: HEPATITIS C
     Dosage: 800 MG ORAL
     Route: 048
     Dates: start: 20031108, end: 20040508
  2. INTRON A [Suspect]
     Indication: HEPATITIS C
     Dosage: 3-10 MIU* INTRAMUSCULAR
     Route: 030
     Dates: start: 20031107, end: 20031125
  3. INTRON A [Suspect]
     Indication: HEPATITIS C
     Dosage: 3-10 MIU* INTRAMUSCULAR
     Route: 030
     Dates: start: 20031126, end: 20031206
  4. INTRON A [Suspect]
     Indication: HEPATITIS C
     Dosage: 3-10 MIU* INTRAMUSCULAR
     Route: 030
     Dates: start: 20031208, end: 20040315
  5. INTRON A [Suspect]
     Indication: HEPATITIS C
     Dosage: 3-10 MIU* INTRAMUSCULAR
     Route: 030
     Dates: start: 20040317, end: 20041107
  6. LANIRAPID TABLETS [Concomitant]
  7. WARFARIN SODIUM [Concomitant]
  8. AMARYL [Concomitant]

REACTIONS (6)
  - ERYTHEMA [None]
  - IMPAIRED HEALING [None]
  - INJECTION SITE NECROSIS [None]
  - INJECTION SITE ULCER [None]
  - PRURITUS [None]
  - RETINAL HAEMORRHAGE [None]
